FAERS Safety Report 5531397-7 (Version None)
Quarter: 2007Q4

REPORT INFORMATION
  Report Type: 
  Country: None (occurrence: None)
  Receive Date: 20071203
  Receipt Date: 20071122
  Transmission Date: 20080405
  Serious: Yes (Hospitalization)
  Sender: FDA-Public Use
  Company Number: JP-BRISTOL-MYERS SQUIBB COMPANY-13849864

PATIENT
  Age: 66 Year
  Sex: Female
  Weight: 49 kg

DRUGS (12)
  1. ABATACEPT [Suspect]
     Indication: RHEUMATOID ARTHRITIS
     Route: 041
     Dates: start: 20070412
  2. PREDNISOLONE [Concomitant]
     Indication: RHEUMATOID ARTHRITIS
     Dosage: TABLET FORM
     Route: 048
     Dates: start: 20070301
  3. MOBIC [Concomitant]
     Indication: RHEUMATOID ARTHRITIS
     Dosage: 10 MG BEFORE STUDY ENROLLEMENT TILL 24-JUN-2007. 15MG FROM 25-JUN-2007 CONTINUING. TABLET FORM
     Route: 048
  4. VOLTAREN [Concomitant]
     Indication: RHEUMATOID ARTHRITIS
     Route: 061
  5. KETOPROFEN [Concomitant]
     Indication: RHEUMATOID ARTHRITIS
     Dosage: 1 DOSAGE FORM = 30 (NO UNITS).
     Route: 061
  6. DICLOFENAC SODIUM [Concomitant]
     Indication: RHEUMATOID ARTHRITIS
     Dates: start: 20070713
  7. NU-LOTAN [Concomitant]
     Indication: HYPERTENSION
     Dosage: TABLET FORM
     Route: 048
  8. GASLON N [Concomitant]
     Route: 048
  9. TAKEPRON [Concomitant]
     Indication: GASTRITIS
     Dosage: TABLET FORM
     Route: 048
  10. FOSAMAC [Concomitant]
     Indication: OSTEOPOROSIS
     Dosage: TABLET FORM
     Route: 048
  11. LIPITOR [Concomitant]
     Indication: HYPERLIPIDAEMIA
     Dosage: TABLET FORM
     Route: 048
  12. BUFFERIN [Concomitant]
     Indication: HEADACHE
     Dosage: TABLET FORM
     Route: 048
     Dates: start: 20070703

REACTIONS (1)
  - GASTROENTERITIS [None]
